FAERS Safety Report 19384617 (Version 1)
Quarter: 2021Q2

REPORT INFORMATION
  Report Type: Spontaneous
  Country: AU (occurrence: AU)
  Receive Date: 20210608
  Receipt Date: 20210608
  Transmission Date: 20210717
  Serious: Yes (Hospitalization, Other)
  Sender: FDA-Public Use
  Company Number: AU-ALKEM LABORATORIES LIMITED-AU-ALKEM-2021-03198

PATIENT
  Age: 48 Year
  Sex: Male

DRUGS (4)
  1. AZATHIOPRINE. [Suspect]
     Active Substance: AZATHIOPRINE
     Indication: GLOMERULONEPHRITIS RAPIDLY PROGRESSIVE
     Dosage: 200 MILLIGRAM, QD
     Route: 065
  2. PIPERACILLINE, TAZOBACTAM [Concomitant]
     Active Substance: PIPERACILLIN SODIUM\TAZOBACTAM SODIUM
     Indication: GLOMERULONEPHRITIS RAPIDLY PROGRESSIVE
     Dosage: 50 MILLIGRAM
     Route: 065
  3. PIPERACILLINE, TAZOBACTAM [Concomitant]
     Active Substance: PIPERACILLIN SODIUM\TAZOBACTAM SODIUM
     Dosage: 5 MILLIGRAM
     Route: 065
  4. PREDNISOLONE. [Concomitant]
     Active Substance: PREDNISOLONE
     Indication: GLOMERULONEPHRITIS RAPIDLY PROGRESSIVE

REACTIONS (3)
  - Tubulointerstitial nephritis [Recovered/Resolved]
  - Cutaneous vasculitis [Recovered/Resolved]
  - Drug reaction with eosinophilia and systemic symptoms [Recovered/Resolved]
